FAERS Safety Report 10094395 (Version 1)
Quarter: 2014Q2

REPORT INFORMATION
  Report Type: Spontaneous
  Country: US (occurrence: None)
  Receive Date: 20140421
  Receipt Date: 20140421
  Transmission Date: 20141212
  Serious: Yes (Life-Threatening, Hospitalization, Disabling, Other)
  Sender: FDA-Public Use
  Company Number: None

PATIENT
  Age: 32 Year
  Sex: Male
  Weight: 58.06 kg

DRUGS (2)
  1. VANCOMYCIN [Suspect]
     Indication: STAPHYLOCOCCAL INFECTION
     Dosage: 1 GRAM AS NEEDED INTO A VEIN
     Route: 042
     Dates: start: 20131130, end: 20131203
  2. VANCOMYCIN [Suspect]
     Indication: STAPHYLOCOCCAL INFECTION
     Dosage: 1 GRAM AS NEEDED INTO A VEIN
     Route: 042
     Dates: start: 20131130, end: 20131203

REACTIONS (11)
  - Nausea [None]
  - Tinnitus [None]
  - Musculoskeletal stiffness [None]
  - Dysphagia [None]
  - Immobile [None]
  - Headache [None]
  - Speech disorder [None]
  - Vision blurred [None]
  - Muscle spasms [None]
  - Dyspnoea [None]
  - Myalgia [None]
